FAERS Safety Report 20148821 (Version 2)
Quarter: 2024Q1

REPORT INFORMATION
  Report Type: Report from Study
  Country: BG (occurrence: BG)
  Receive Date: 20211204
  Receipt Date: 20240119
  Transmission Date: 20240410
  Serious: Yes (Hospitalization)
  Sender: FDA-Public Use
  Company Number: BG-NOVARTISPH-PHHY2019BG227717

PATIENT
  Age: 29 Year
  Sex: Female
  Weight: 90 kg

DRUGS (3)
  1. COSENTYX [Suspect]
     Active Substance: SECUKINUMAB
     Indication: Ankylosing spondylitis
     Dosage: 150 MG, QMO
     Route: 058
     Dates: start: 20171107, end: 20171205
  2. COSENTYX [Suspect]
     Active Substance: SECUKINUMAB
     Dosage: 150 MG
     Route: 065
     Dates: start: 20171205, end: 20190616
  3. DICLOFENAC [Concomitant]
     Active Substance: DICLOFENAC
     Indication: Ankylosing spondylitis
     Dosage: 50 MG, UNK
     Route: 065
     Dates: start: 20190812, end: 20190819

REACTIONS (5)
  - Ankylosing spondylitis [Recovered/Resolved]
  - Dermatitis allergic [Recovered/Resolved]
  - Dermatitis allergic [Recovered/Resolved]
  - Drug hypersensitivity [Recovered/Resolved]
  - Rash [Recovered/Resolved]

NARRATIVE: CASE EVENT DATE: 20190615
